FAERS Safety Report 9423857 (Version 4)
Quarter: 2013Q3

REPORT INFORMATION
  Report Type: Report from Study
  Country: GB (occurrence: GB)
  Receive Date: 20130729
  Receipt Date: 20130920
  Transmission Date: 20140515
  Serious: Yes (Other)
  Sender: FDA-Public Use
  Company Number: GB-ROCHE-1253335

PATIENT
  Age: 67 Year
  Sex: Male
  Weight: 64.9 kg

DRUGS (6)
  1. RITUXIMAB [Suspect]
     Indication: B-CELL LYMPHOMA
     Route: 042
     Dates: start: 20121220, end: 20130718
  2. FLUDARABINE [Suspect]
     Indication: B-CELL LYMPHOMA
     Route: 048
     Dates: start: 20121220, end: 20130318
  3. CYCLOPHOSPHAMIDE [Suspect]
     Indication: B-CELL LYMPHOMA
     Route: 048
     Dates: start: 20121220, end: 20130318
  4. COTRIMOXAZOLE [Concomitant]
     Indication: PROPHYLAXIS
     Route: 048
     Dates: start: 20121220
  5. ALLOPURINOL [Concomitant]
     Indication: PROPHYLAXIS
     Route: 048
     Dates: start: 20121220
  6. FERROUS SULPHATE [Concomitant]
     Indication: ANAEMIA
     Route: 048
     Dates: start: 20130814

REACTIONS (1)
  - Ascites [Not Recovered/Not Resolved]
